FAERS Safety Report 21299123 (Version 1)
Quarter: 2022Q3

REPORT INFORMATION
  Report Type: Spontaneous
  Country: US (occurrence: None)
  Receive Date: 20220906
  Receipt Date: 20220906
  Transmission Date: 20221027
  Serious: No
  Sender: FDA-Public Use
  Company Number: None

PATIENT

DRUGS (2)
  1. ATORVASTATIN CALCIUM [Suspect]
     Active Substance: ATORVASTATIN CALCIUM
     Route: 048
  2. OLANZAPINE [Suspect]
     Active Substance: OLANZAPINE
     Route: 048

REACTIONS (3)
  - Wrong product administered [None]
  - Somnolence [None]
  - Product dispensing error [None]
